FAERS Safety Report 7772140 (Version 6)
Quarter: 2018Q3

REPORT INFORMATION
  Report Type: Report from Study
  Country: DE (occurrence: DE)
  Receive Date: 20110124
  Receipt Date: 20180827
  Transmission Date: 20181010
  Serious: Yes (Death, Hospitalization, Other)
  Sender: FDA-Public Use
  Company Number: PHHY2010DE02374

PATIENT
  Age: 66 Year
  Sex: Female

DRUGS (28)
  1. TASIGNA [Suspect]
     Active Substance: NILOTINIB
     Dosage: 200 MG, QD
     Route: 048
     Dates: start: 20080618, end: 20080625
  2. TASIGNA [Suspect]
     Active Substance: NILOTINIB
     Dosage: 142.9 MG, QD
     Route: 048
     Dates: start: 20080827
  3. CLINDAMYCIN. [Concomitant]
     Active Substance: CLINDAMYCIN
     Indication: PRODUCT USED FOR UNKNOWN INDICATION
     Dosage: UNK
     Route: 065
     Dates: start: 200904
  4. CIMICIFUGA [Concomitant]
     Active Substance: BLACK COHOSH
     Indication: PRODUCT USED FOR UNKNOWN INDICATION
     Dosage: UNK
     Route: 065
     Dates: start: 20081111
  5. DAIVOBET [Concomitant]
     Active Substance: BETAMETHASONE DIPROPIONATE\CALCIPOTRIENE
     Indication: DERMATITIS ALLERGIC
     Route: 065
     Dates: start: 200902
  6. TASIGNA [Suspect]
     Active Substance: NILOTINIB
     Dosage: 400 MG, QD
     Route: 048
     Dates: start: 20080123, end: 20080212
  7. TASIGNA [Suspect]
     Active Substance: NILOTINIB
     Dosage: 114.3 MG, QD
     Route: 048
     Dates: start: 20080826, end: 20080826
  8. TASIGNA [Suspect]
     Active Substance: NILOTINIB
     Dosage: 171 MG, QD
     Route: 048
     Dates: start: 20090310, end: 20090330
  9. AMPHO?MORONAL [Concomitant]
     Active Substance: AMPHOTERICIN B
     Indication: PRODUCT USED FOR UNKNOWN INDICATION
     Dosage: UNK
     Route: 065
     Dates: start: 20080215
  10. LEVOCETIRIZINE [Concomitant]
     Active Substance: LEVOCETIRIZINE
     Indication: PRODUCT USED FOR UNKNOWN INDICATION
     Dosage: UNK
     Route: 065
     Dates: start: 20080514
  11. LYRICA [Concomitant]
     Active Substance: PREGABALIN
     Indication: PRODUCT USED FOR UNKNOWN INDICATION
     Dosage: UNK
     Route: 065
     Dates: start: 20090304, end: 20090310
  12. CIPROFLOXACIN. [Concomitant]
     Active Substance: CIPROFLOXACIN
     Indication: PRODUCT USED FOR UNKNOWN INDICATION
     Dosage: 500 MG, UNK
     Route: 048
     Dates: start: 20080211, end: 20080226
  13. ZINC. [Concomitant]
     Active Substance: ZINC
     Indication: PRODUCT USED FOR UNKNOWN INDICATION
     Dosage: UNK UKN, UNK
     Route: 065
     Dates: start: 20080721
  14. ROXITHROMYCIN [Concomitant]
     Active Substance: ROXITHROMYCIN
     Indication: PRODUCT USED FOR UNKNOWN INDICATION
     Dosage: UNK
     Route: 065
     Dates: start: 20080415
  15. ALLOPURINOL. [Concomitant]
     Active Substance: ALLOPURINOL
     Indication: PRODUCT USED FOR UNKNOWN INDICATION
     Dosage: 150 MG, QD
     Route: 065
     Dates: start: 20090331
  16. TASIGNA [Suspect]
     Active Substance: NILOTINIB
     Dosage: 342.86 MG, QD
     Route: 048
     Dates: start: 20090520, end: 20090610
  17. PASPERTIN                               /GFR/ [Concomitant]
     Indication: PRODUCT USED FOR UNKNOWN INDICATION
     Route: 065
  18. TASIGNA [Suspect]
     Active Substance: NILOTINIB
     Dosage: 200 MG, QD
     Route: 048
     Dates: start: 20080213, end: 20080215
  19. IBUPROFEN. [Concomitant]
     Active Substance: IBUPROFEN
     Indication: PRODUCT USED FOR UNKNOWN INDICATION
     Dosage: UNK
     Route: 048
     Dates: start: 20080129
  20. UBRETID [Concomitant]
     Active Substance: DISTIGMINE BROMIDE
     Indication: PRODUCT USED FOR UNKNOWN INDICATION
     Dosage: 5 MG, UNK
     Route: 065
     Dates: start: 200811
  21. METOPROLOL. [Concomitant]
     Active Substance: METOPROLOL
     Indication: HYPERTENSION
     Dosage: 95 MG, UNK
     Route: 048
     Dates: start: 20080514
  22. ONDANSETRON [Concomitant]
     Active Substance: ONDANSETRON
     Indication: NAUSEA
     Dosage: 4 MG, QD
     Route: 048
     Dates: start: 20081203
  23. JURNISTA [Concomitant]
     Active Substance: HYDROMORPHONE HYDROCHLORIDE
     Indication: PRODUCT USED FOR UNKNOWN INDICATION
     Dosage: 12 MG, UNK (8 MG AND 4 MG)
     Route: 065
     Dates: start: 20090603
  24. TASIGNA [Suspect]
     Active Substance: NILOTINIB
     Indication: CHRONIC MYELOID LEUKAEMIA
     Dosage: 800 MG, QD
     Route: 048
     Dates: start: 20080115, end: 20080122
  25. TASIGNA [Suspect]
     Active Substance: NILOTINIB
     Dosage: 114.8 MG, QD
     Route: 048
     Dates: start: 20080626, end: 20080703
  26. TASIGNA [Suspect]
     Active Substance: NILOTINIB
     Dosage: 200 MG, QD
     Route: 048
     Dates: start: 20090218, end: 20090309
  27. MOVICOL [Concomitant]
     Active Substance: POLYETHYLENE GLYCOL 3350\POTASSIUM CHLORIDE\SODIUM BICARBONATE\SODIUM CHLORIDE
     Indication: PRODUCT USED FOR UNKNOWN INDICATION
     Dosage: UNK
     Route: 065
     Dates: start: 20080516
  28. BUPRENORPHINE. [Concomitant]
     Active Substance: BUPRENORPHINE
     Indication: PRODUCT USED FOR UNKNOWN INDICATION
     Dosage: UNK
     Route: 062
     Dates: start: 20080122, end: 20090128

REACTIONS (27)
  - Asthenia [Fatal]
  - Hyperhidrosis [Unknown]
  - Nasopharyngitis [Unknown]
  - Epistaxis [Unknown]
  - Vomiting [Unknown]
  - Gastroenteritis [Recovered/Resolved]
  - Hypertension [Unknown]
  - Arthralgia [Unknown]
  - Thrombocytopenia [Fatal]
  - Bronchitis [Recovered/Resolved]
  - Tachycardia [Unknown]
  - Uterine disorder [Not Recovered/Not Resolved]
  - Urinary tract infection [Recovered/Resolved]
  - Back pain [Recovered/Resolved]
  - Neck pain [Recovered/Resolved]
  - Peritonsillar abscess [Recovered/Resolved]
  - Nausea [Not Recovered/Not Resolved]
  - Drug resistance [Unknown]
  - Blast crisis in myelogenous leukaemia [Fatal]
  - Anaemia [Fatal]
  - Tonsillitis [Recovered/Resolved]
  - Muscular weakness [Unknown]
  - Dyspnoea exertional [Recovered/Resolved]
  - Pain in extremity [Not Recovered/Not Resolved]
  - Oedema peripheral [Unknown]
  - Pain [Fatal]
  - Mucosal inflammation [Not Recovered/Not Resolved]

NARRATIVE: CASE EVENT DATE: 20080122
